FAERS Safety Report 24663130 (Version 1)
Quarter: 2024Q4

REPORT INFORMATION
  Report Type: Spontaneous
  Country: IN (occurrence: IN)
  Receive Date: 20241126
  Receipt Date: 20241126
  Transmission Date: 20250115
  Serious: Yes (Hospitalization, Other)
  Sender: EPIC PHARM
  Company Number: IN-EPICPHARMA-IN-2024EPCLIT01462

PATIENT
  Age: 4 Month
  Sex: Female

DRUGS (2)
  1. PHENYTOIN [Suspect]
     Active Substance: PHENYTOIN
     Indication: Foetal exposure during pregnancy
     Route: 064
  2. PHENYTOIN [Suspect]
     Active Substance: PHENYTOIN
     Route: 063

REACTIONS (6)
  - Vitamin B12 deficiency [Unknown]
  - Tremor neonatal [Unknown]
  - Pneumonia [Unknown]
  - Apathy [Unknown]
  - Foetal exposure during pregnancy [Unknown]
  - Maternal exposure during breast feeding [Unknown]
